FAERS Safety Report 8450350-7 (Version None)
Quarter: 2012Q2

REPORT INFORMATION
  Report Type: 
  Country: None (occurrence: None)
  Receive Date: 20120614
  Receipt Date: 20120614
  Transmission Date: 20120825
  Serious: Yes (Disabling)
  Sender: FDA-Public Use
  Company Number: None

PATIENT
  Age: 36 Year
  Sex: Female
  Weight: 58.0604 kg

DRUGS (1)
  1. CIPRO [Suspect]

REACTIONS (9)
  - INFLUENZA [None]
  - ARTHRALGIA [None]
  - MUSCLE SPASMS [None]
  - JOINT SWELLING [None]
  - TENDON PAIN [None]
  - SUICIDAL IDEATION [None]
  - MUSCULOSKELETAL PAIN [None]
  - ANXIETY [None]
  - INSOMNIA [None]
